FAERS Safety Report 22390919 (Version 1)
Quarter: 2023Q2

REPORT INFORMATION
  Report Type: Spontaneous
  Country: US (occurrence: US)
  Receive Date: 20230601
  Receipt Date: 20230601
  Transmission Date: 20230722
  Serious: Yes (Hospitalization, Other)
  Sender: FDA-Public Use
  Company Number: US-STRIDES ARCOLAB LIMITED-2023SP008358

PATIENT
  Age: 78 Year
  Sex: Male

DRUGS (1)
  1. ETHACRYNIC ACID [Suspect]
     Active Substance: ETHACRYNIC ACID
     Indication: Product used for unknown indication
     Dosage: UNK
     Route: 065

REACTIONS (3)
  - Anti-transglutaminase antibody negative [Recovered/Resolved]
  - Coeliac disease [Recovered/Resolved]
  - Diarrhoea [Recovered/Resolved]
